FAERS Safety Report 4666450-3 (Version None)
Quarter: 2005Q2

REPORT INFORMATION
  Report Type: 
  Country: None (occurrence: None)
  Receive Date: 20050518
  Receipt Date: 20050504
  Transmission Date: 20051028
  Serious: Yes (Other)
  Sender: FDA-Public Use
  Company Number: S05-USA-01768-01

PATIENT
  Age: 32 Year
  Sex: Male

DRUGS (8)
  1. LEXAPRO [Suspect]
     Indication: ANXIETY
     Dosage: 20 MG QD PO
     Route: 048
     Dates: start: 20050324, end: 20050326
  2. LEXAPRO [Suspect]
     Indication: DEPRESSION
     Dosage: 20 MG QD PO
     Route: 048
     Dates: start: 20050324, end: 20050326
  3. LEXAPRO [Suspect]
     Indication: ANXIETY
     Dosage: 10 MG QD PO
     Route: 048
     Dates: start: 20050327, end: 20050412
  4. LEXAPRO [Suspect]
     Indication: DEPRESSION
     Dosage: 10 MG QD PO
     Route: 048
     Dates: start: 20050327, end: 20050412
  5. LEXAPRO [Suspect]
     Indication: ANXIETY
     Dosage: 20 MG QD PO
     Route: 048
     Dates: start: 20050413
  6. LEXAPRO [Suspect]
     Indication: DEPRESSION
     Dosage: 20 MG QD PO
     Route: 048
     Dates: start: 20050413
  7. RIPPED FUEL (BITTER ORANGE/L-PHENYLALANINE/GUARANA/METABOLIC FAT LOSS [Suspect]
     Indication: MEDICAL DIET
     Dosage: 2 TABLET ONCE PO
     Route: 048
     Dates: start: 20050326, end: 20050326
  8. ALCOHOL [Suspect]
     Dates: start: 20050326, end: 20050326

REACTIONS (5)
  - AGGRESSION [None]
  - ALCOHOL USE [None]
  - AMNESIA [None]
  - DRUG INTERACTION [None]
  - LOSS OF CONSCIOUSNESS [None]
